FAERS Safety Report 9153140 (Version 9)
Quarter: 2015Q1

REPORT INFORMATION
  Report Type: Spontaneous
  Country: AU (occurrence: AU)
  Receive Date: 20130311
  Receipt Date: 20150328
  Transmission Date: 20150721
  Serious: Yes (Hospitalization, Other)
  Sender: FDA-Public Use
  Company Number: AU-BIOGENIDEC-2013BI020229

PATIENT
  Age: 40 Year
  Sex: Female

DRUGS (9)
  1. VITAMIN D3 [Concomitant]
     Active Substance: CHOLECALCIFEROL
  2. VITAMIN B INJECTION [Concomitant]
  3. KEPPRA [Concomitant]
     Active Substance: LEVETIRACETAM
  4. CLONAZEPAM. [Concomitant]
     Active Substance: CLONAZEPAM
  5. BACLOFEN. [Concomitant]
     Active Substance: BACLOFEN
  6. TYSABRI [Suspect]
     Active Substance: NATALIZUMAB
     Indication: MULTIPLE SCLEROSIS
     Route: 042
     Dates: start: 20080905, end: 20130111
  7. CIPRAMIL (CITALOPRAM) [Concomitant]
  8. LEVETIRACETAM. [Concomitant]
     Active Substance: LEVETIRACETAM
  9. OXYBUTYNIN [Concomitant]
     Active Substance: OXYBUTYNIN

REACTIONS (2)
  - Progressive multifocal leukoencephalopathy [Recovered/Resolved]
  - Immune reconstitution inflammatory syndrome [Recovered/Resolved]
